FAERS Safety Report 8387338-0 (Version None)
Quarter: 2012Q2

REPORT INFORMATION
  Report Type: 
  Country: None (occurrence: None)
  Receive Date: 20120525
  Receipt Date: 20120505
  Transmission Date: 20120825
  Serious: Yes (Hospitalization)
  Sender: FDA-Public Use
  Company Number: SA-ROCHE-1071441

PATIENT
  Sex: Female
  Weight: 64 kg

DRUGS (6)
  1. RITUXIMAB [Suspect]
     Indication: MYOSITIS
     Dosage: AFTER EVERY SIX MONTHS
     Route: 042
     Dates: start: 20100101
  2. RITUXIMAB [Suspect]
     Route: 042
     Dates: start: 20120421, end: 20120421
  3. CELLCEPT [Concomitant]
     Indication: IMMUNOSUPPRESSION
     Route: 048
  4. PREDNISOLONE [Concomitant]
     Indication: MYOSITIS
     Dates: start: 20120421, end: 20120421
  5. RITUXIMAB [Suspect]
     Dosage: AFTER EVERY SIX MONTHS
     Route: 042
  6. DEPAKIN [Concomitant]
     Indication: EPILEPSY

REACTIONS (1)
  - GRAND MAL CONVULSION [None]
